FAERS Safety Report 19297795 (Version 1)
Quarter: 2021Q2

REPORT INFORMATION
  Report Type: Spontaneous
  Country: US (occurrence: US)
  Receive Date: 20210524
  Receipt Date: 20210524
  Transmission Date: 20210717
  Serious: No
  Sender: FDA-Public Use
  Company Number: US-TEVA-2021-US-1907365

PATIENT
  Sex: Female

DRUGS (17)
  1. SUMATRIPTAN. [Suspect]
     Active Substance: SUMATRIPTAN
     Route: 065
  2. PROCAINE [Suspect]
     Active Substance: PROCAINE
     Route: 065
  3. AUSTEDO [Concomitant]
     Active Substance: DEUTETRABENAZINE
     Route: 048
  4. CALCIUM [Concomitant]
     Active Substance: CALCIUM
     Dosage: 20 MILLIGRAM DAILY;
     Route: 048
  5. CLONAZEPAM. [Concomitant]
     Active Substance: CLONAZEPAM
     Dosage: AS NEEDED
     Route: 048
  6. AUSTEDO [Concomitant]
     Active Substance: DEUTETRABENAZINE
     Route: 048
  7. MULTIPLE VITAMINSMINERALS [Concomitant]
     Route: 065
  8. AUSTEDO [Concomitant]
     Active Substance: DEUTETRABENAZINE
     Route: 048
  9. ATORVASTATIN [Concomitant]
     Active Substance: ATORVASTATIN
     Dosage: 18 MILLIGRAM DAILY;
     Route: 065
  10. EPINEPHRINE. [Suspect]
     Active Substance: EPINEPHRINE
     Route: 065
  11. B COMPLETE?C [Concomitant]
     Route: 065
  12. LACTOBACILLUS [Concomitant]
     Active Substance: LACTOBACILLUS ACIDOPHILUS
     Route: 065
  13. RABEPRAZOLE SODIUM. [Concomitant]
     Active Substance: RABEPRAZOLE SODIUM
     Route: 065
  14. LYSINE [Concomitant]
     Active Substance: LYSINE
     Dosage: 500 MILLIGRAM DAILY;
     Route: 065
  15. CENTRUM SILVER [Concomitant]
     Active Substance: MINERALS\VITAMINS
     Route: 048
  16. OLANZAPINE. [Concomitant]
     Active Substance: OLANZAPINE
     Dosage: AT BEDTIME
     Route: 048
  17. PAROXETINE HCL [Concomitant]
     Active Substance: PAROXETINE HYDROCHLORIDE
     Dosage: 25 MILLIGRAM DAILY; EVERY MORNING
     Route: 048

REACTIONS (1)
  - Hypersensitivity [Unknown]
